FAERS Safety Report 19188031 (Version 1)
Quarter: 2021Q2

REPORT INFORMATION
  Report Type: Spontaneous
  Country: FR (occurrence: FR)
  Receive Date: 20210428
  Receipt Date: 20210428
  Transmission Date: 20210717
  Serious: Yes (Hospitalization, Other)
  Sender: FDA-Public Use
  Company Number: FR-SA-2021SA139048

PATIENT
  Age: 66 Year
  Sex: Female

DRUGS (1)
  1. DUPIXENT [Suspect]
     Active Substance: DUPILUMAB
     Indication: DERMATOSIS
     Dosage: 300 MG, QOW
     Route: 058
     Dates: start: 20210120, end: 20210322

REACTIONS (4)
  - Diarrhoea [Not Recovered/Not Resolved]
  - Deep vein thrombosis [Recovering/Resolving]
  - Vomiting [Not Recovered/Not Resolved]
  - Pulmonary embolism [Recovering/Resolving]

NARRATIVE: CASE EVENT DATE: 20210125
